FAERS Safety Report 9501568 (Version 1)
Quarter: 2013Q1

REPORT INFORMATION
  Report Type: Spontaneous
  Country: US (occurrence: None)
  Receive Date: 20130107
  Receipt Date: 20130107
  Transmission Date: 20140127
  Serious: Yes (Other)
  Sender: FDA-Public Use
  Company Number: PHEH2012US02428

PATIENT
  Age: 67 Year
  Sex: Female
  Weight: 76.6 kg

DRUGS (16)
  1. GILENYA (FINGOLIMOD) CAPSULE, 0.5MG [Suspect]
     Indication: MULTIPLE SCLEROSIS
     Route: 048
     Dates: start: 20121030
  2. PREMARIN (ESTROGENS CONJUGATED) [Concomitant]
  3. TIZANIDINE (TIZANIDINE) [Concomitant]
  4. FISH OIL (FISH OIL) [Concomitant]
  5. OSCAL (CALCIUM CARBONATE) [Concomitant]
  6. DETROL (TOLTERODINE L-TARTRATE) [Concomitant]
  7. VITAMIN B C COMPLEX (ASCORBIC ACID, NICOTINAMIDE, PYRIDOXINE HYDROCHLORIDE, RIBOFLAVIN SODIUM PHOSPHATE, THIAMINE HYDROCHLORIDE) [Concomitant]
  8. SUMATRIPTAN (SU,ATRIPTAN) [Concomitant]
  9. LISINOPRIL (LISINOPRIL) [Concomitant]
  10. VICODIN (HYDROCODONE BITARTRATE, PARACETAMOL) [Concomitant]
  11. ASPIRIN (ACETYLSALICYLIC ACID) [Concomitant]
  12. LEXAPRO (ESCITALOPRAM OXALATE) [Concomitant]
  13. CENTRUM (MINERALS NOS, VITAMINS NOS) [Concomitant]
  14. BACLOFEN (BACLOFEN) [Concomitant]
  15. LEVOTHYROXINE SODIUM (LEVOTHYROXINE SODIUM) [Concomitant]
  16. CHOLECALCIFEROL (COLECALCIFEROL) [Concomitant]

REACTIONS (2)
  - Heart rate decreased [None]
  - Electrocardiogram QT prolonged [None]
